FAERS Safety Report 6836490-4 (Version None)
Quarter: 2010Q3

REPORT INFORMATION
  Report Type: 
  Country: None (occurrence: None)
  Receive Date: 20100708
  Receipt Date: 20100623
  Transmission Date: 20110219
  Serious: Yes (Hospitalization)
  Sender: FDA-Public Use
  Company Number: JPI-P-011118

PATIENT
  Age: 34 Year
  Sex: Female
  Weight: 81.6475 kg

DRUGS (4)
  1. LUVOX [Suspect]
     Indication: OBSESSIVE-COMPULSIVE DISORDER
     Dosage: 100 MG (100 MG, 1 IN 1 D), ORAL; 200 MG (200 MG, 1 IN 1 D), ORAL
     Route: 048
     Dates: start: 20090901, end: 20100301
  2. LUVOX [Suspect]
     Indication: OBSESSIVE-COMPULSIVE DISORDER
     Dosage: 100 MG (100 MG, 1 IN 1 D), ORAL; 200 MG (200 MG, 1 IN 1 D), ORAL
     Route: 048
     Dates: start: 20100301, end: 20100609
  3. ARIPIPRAZOLE [Suspect]
     Indication: PRODUCT USED FOR UNKNOWN INDICATION
     Dosage: (1 DOSAGE FORMS, ONCE)
     Dates: start: 20100609, end: 20100609
  4. THYROID TAB [Concomitant]

REACTIONS (5)
  - ANXIETY [None]
  - CATATONIA [None]
  - PAIN [None]
  - PAIN IN EXTREMITY [None]
  - STRESS [None]
